FAERS Safety Report 8675543 (Version 3)
Quarter: 2013Q4

REPORT INFORMATION
  Report Type: Spontaneous
  Country: ES (occurrence: ES)
  Receive Date: 20120720
  Receipt Date: 20131105
  Transmission Date: 20140711
  Serious: Yes (Other)
  Sender: FDA-Public Use
  Company Number: ES-009507513-1207ESP006123

PATIENT
  Age: 44 Year
  Sex: Male
  Weight: 96 kg

DRUGS (4)
  1. TESAVEL [Suspect]
     Indication: TYPE 2 DIABETES MELLITUS
     Dosage: 1 DF, QD
     Route: 048
     Dates: start: 20110617, end: 20111123
  2. ATENOLOL 50 [Concomitant]
     Indication: HYPERTENSION
     Dosage: 1 DF, QD
     Route: 048
     Dates: start: 20080717
  3. CARDURAN NEO [Concomitant]
     Indication: HYPERTENSION
     Dosage: 1 DF, QD
     Route: 048
     Dates: start: 20110617, end: 20111123
  4. PRANDIN [Concomitant]
     Indication: TYPE 2 DIABETES MELLITUS
     Dosage: 4 DF, QD
     Route: 048
     Dates: start: 20061122

REACTIONS (5)
  - Blood creatinine increased [Recovering/Resolving]
  - Renal failure acute [Not Recovered/Not Resolved]
  - Renal failure chronic [Not Recovered/Not Resolved]
  - Anaemia [Unknown]
  - Tubulointerstitial nephritis [Unknown]
